FAERS Safety Report 4353024-7 (Version None)
Quarter: 2004Q2

REPORT INFORMATION
  Report Type: 
  Country: None (occurrence: None)
  Receive Date: 20040429
  Receipt Date: 20040415
  Transmission Date: 20050107
  Serious: Yes (Hospitalization)
  Sender: FDA-Public Use
  Company Number: 0400020EN0020P

PATIENT
  Age: 3 Year
  Sex: Female

DRUGS (4)
  1. ONCASPAR [Suspect]
     Indication: ACUTE LYMPHOCYTIC LEUKAEMIA
     Dosage: 600 IU IM
     Route: 030
     Dates: start: 20040308, end: 20040322
  2. DEXAMETHASONE [Suspect]
     Indication: ACUTE LYMPHOCYTIC LEUKAEMIA
     Dosage: 6.5 MG PO
     Route: 048
     Dates: start: 20040303, end: 20040331
  3. VINCRISTINE [Concomitant]
  4. COTRIM [Concomitant]

REACTIONS (2)
  - HEPATOMEGALY [None]
  - HYPERTRIGLYCERIDAEMIA [None]
